FAERS Safety Report 17515090 (Version 1)
Quarter: 2020Q1

REPORT INFORMATION
  Report Type: Spontaneous
  Country: US (occurrence: US)
  Receive Date: 20200226
  Receipt Date: 20200226
  Transmission Date: 20200409
  Serious: Yes (Death, Hospitalization)
  Sender: FDA-Public Use
  Company Number: None

PATIENT
  Age: 82 Year
  Sex: Female
  Weight: 90 kg

DRUGS (2)
  1. VITAMIN D [Suspect]
     Active Substance: VITAMIN D NOS
     Indication: VITAMIN D DEFICIENCY
     Route: 048
     Dates: start: 20191218
  2. NO DRUG NAME [Concomitant]

REACTIONS (10)
  - Fungal infection [None]
  - Diarrhoea [None]
  - Tachycardia [None]
  - Pulmonary embolism [None]
  - Sepsis [None]
  - Dysuria [None]
  - Chest pain [None]
  - Asthenia [None]
  - Hypotension [None]
  - Diffuse large B-cell lymphoma [None]

NARRATIVE: CASE EVENT DATE: 20200217
